FAERS Safety Report 18620405 (Version 1)
Quarter: 2020Q4

REPORT INFORMATION
  Report Type: Spontaneous
  Country: US (occurrence: US)
  Receive Date: 20201215
  Receipt Date: 20201215
  Transmission Date: 20210114
  Serious: No
  Sender: FDA-Public Use
  Company Number: US-PFIZER INC-2020491545

PATIENT
  Age: 69 Year
  Sex: Female

DRUGS (2)
  1. LEVOTHYROXINE SODIUM. [Suspect]
     Active Substance: LEVOTHYROXINE SODIUM
     Dosage: UNK
  2. CYTOMEL [Suspect]
     Active Substance: LIOTHYRONINE SODIUM
     Dosage: UNK

REACTIONS (7)
  - Sleep disorder [Unknown]
  - Tremor [Unknown]
  - Gait disturbance [Unknown]
  - Anxiety [Unknown]
  - Product dispensing error [Unknown]
  - Fibromyalgia [Unknown]
  - Wrong product administered [Unknown]
